FAERS Safety Report 10485966 (Version 1)
Quarter: 2014Q3

REPORT INFORMATION
  Report Type: Spontaneous
  Country: US (occurrence: None)
  Receive Date: 20140930
  Receipt Date: 20140930
  Transmission Date: 20150326
  Serious: Yes (Hospitalization)
  Sender: FDA-Public Use
  Company Number: None

PATIENT
  Age: 59 Year
  Sex: Female
  Weight: 86.18 kg

DRUGS (5)
  1. DULOXETINE [Suspect]
     Active Substance: DULOXETINE
     Indication: FIBROMYALGIA
     Route: 048
     Dates: start: 20140815, end: 20140815
  2. VALSARTAN/HCTZ 320/25 [Concomitant]
  3. LEVOTHYROXINE [Concomitant]
     Active Substance: LEVOTHYROXINE
  4. SOTALOL. [Concomitant]
     Active Substance: SOTALOL
  5. TENORIM [Concomitant]

REACTIONS (3)
  - Nausea [None]
  - Blood sodium decreased [None]
  - Pain [None]

NARRATIVE: CASE EVENT DATE: 20140815
